FAERS Safety Report 21113137 (Version 1)
Quarter: 2022Q3

REPORT INFORMATION
  Report Type: Spontaneous
  Country: US (occurrence: US)
  Receive Date: 20220721
  Receipt Date: 20220721
  Transmission Date: 20221027
  Serious: Yes (Hospitalization)
  Sender: FDA-Public Use
  Company Number: US-NOVARTISPH-NVSC2022US164441

PATIENT
  Age: 4 Decade
  Sex: Female
  Weight: 139 kg

DRUGS (1)
  1. DIGOXIN [Suspect]
     Active Substance: DIGOXIN
     Indication: Foetal death
     Dosage: 2 MG, ONCE/SINGLE
     Route: 065

REACTIONS (3)
  - Electrocardiogram repolarisation abnormality [Unknown]
  - Electrocardiogram PR prolongation [Unknown]
  - Product use in unapproved indication [Unknown]
